FAERS Safety Report 14236789 (Version 3)
Quarter: 2018Q1

REPORT INFORMATION
  Report Type: Report from Study
  Country: RU (occurrence: RU)
  Receive Date: 20171129
  Receipt Date: 20180126
  Transmission Date: 20180508
  Serious: Yes (Death)
  Sender: FDA-Public Use
  Company Number: RU-ACTELION-A-US2017-163419

PATIENT
  Age: 70 Year
  Sex: Female

DRUGS (5)
  1. RIOCIGUAT [Suspect]
     Active Substance: RIOCIGUAT
     Indication: PULMONARY HYPERTENSION
     Route: 065
  2. SILDENAFIL. [Suspect]
     Active Substance: SILDENAFIL
     Indication: PULMONARY HYPERTENSION
     Dosage: 60 MG, QD
     Route: 065
     Dates: start: 20170320
  3. TORASEMIDE [Concomitant]
     Active Substance: TORSEMIDE
     Indication: PULMONARY HYPERTENSION
     Dosage: UNK
     Dates: start: 2017
  4. VENTAVIS [Suspect]
     Active Substance: ILOPROST
     Indication: PULMONARY HYPERTENSION
     Dosage: 20 MCG, QD
     Route: 055
     Dates: start: 201704
  5. XARELTO [Suspect]
     Active Substance: RIVAROXABAN
     Indication: PULMONARY HYPERTENSION
     Dosage: 20 MG, QD
     Route: 048
     Dates: start: 2014, end: 201703

REACTIONS (2)
  - Non-cardiogenic pulmonary oedema [Fatal]
  - Sepsis [Fatal]
